FAERS Safety Report 5765564-4 (Version None)
Quarter: 2008Q2

REPORT INFORMATION
  Report Type: 
  Country: None (occurrence: None)
  Receive Date: 20080611
  Receipt Date: 20080610
  Transmission Date: 20081010
  Serious: Yes (Hospitalization, Other)
  Sender: FDA-Public Use
  Company Number: FR-BRISTOL-MYERS SQUIBB COMPANY-14079511

PATIENT
  Age: 90 Year
  Sex: Male
  Weight: 70 kg

DRUGS (6)
  1. PRAVASTATIN SODIUM [Suspect]
     Indication: CAROTID ARTERIOSCLEROSIS
     Dates: start: 20040226, end: 20080213
  2. ATARAX [Concomitant]
  3. VASTAREL [Concomitant]
     Indication: VERTIGO
     Dates: start: 20040721
  4. VASTAREL [Concomitant]
     Indication: TINNITUS
     Dates: start: 20040721
  5. ASPEGIC 1000 [Concomitant]
     Indication: ARTERIOSCLEROSIS
     Dates: start: 20040226
  6. CANDESARTAN CILEXETIL [Concomitant]
     Route: 048
     Dates: start: 20061104

REACTIONS (1)
  - RHABDOMYOSARCOMA [None]
